APPROVED DRUG PRODUCT: IDAMYCIN
Active Ingredient: IDARUBICIN HYDROCHLORIDE
Strength: 10MG/VIAL
Dosage Form/Route: POWDER;INTRAVENOUS
Application: N050661 | Product #001
Applicant: PFIZER INC
Approved: Sep 27, 1990 | RLD: No | RS: No | Type: DISCN